FAERS Safety Report 16753965 (Version 5)
Quarter: 2019Q4

REPORT INFORMATION
  Report Type: Spontaneous
  Country: JP (occurrence: JP)
  Receive Date: 20190829
  Receipt Date: 20191009
  Transmission Date: 20200122
  Serious: Yes (Other)
  Sender: FDA-Public Use
  Company Number: JP-PFIZER INC-2019370353

PATIENT
  Age: 8 Decade
  Sex: Female

DRUGS (7)
  1. BLINCYTO [Suspect]
     Active Substance: BLINATUMOMAB
     Dosage: 28 UG, DAILY (28 UG/DAY, UNKNOWN FREQ.)
     Route: 041
     Dates: start: 20190919, end: 20190926
  2. BLINCYTO [Suspect]
     Active Substance: BLINATUMOMAB
     Dosage: 9 UG, DAILY (9 UG/DAY, UNKNOWN FREQ)
     Route: 041
     Dates: start: 20190613
  3. ACETAMINOPHEN. [Concomitant]
     Active Substance: ACETAMINOPHEN
     Indication: PYREXIA
     Dosage: UNK UNK, UNKNOWN FREQ.
     Route: 065
  4. CELECOX [Suspect]
     Active Substance: CELECOXIB
     Dosage: 200 MG, DAILY (200 MG/DAY, UNKNOWN FREQ)
     Route: 048
     Dates: start: 201908
  5. GRANULOCYTE COLONY STIMULATING FACTOR [Concomitant]
     Active Substance: GRANULOCYTE COLONY-STIMULATING FACTOR NOS
     Dosage: UNK
  6. DEXAMETHASONE. [Concomitant]
     Active Substance: DEXAMETHASONE
     Indication: PYREXIA
     Dosage: UNK UNK, UNKNOWN FREQ.
     Route: 065
  7. BLINCYTO [Suspect]
     Active Substance: BLINATUMOMAB
     Dosage: 28 UG, DAILY (28 UG/DAY, UNKNOWN FREQ.)
     Route: 041
     Dates: start: 20191001

REACTIONS (12)
  - Hyperhidrosis [Recovering/Resolving]
  - Pyrexia [Recovered/Resolved]
  - Malaise [Unknown]
  - Off label use [Unknown]
  - Neutropenia [Recovering/Resolving]
  - Clostridium colitis [Recovered/Resolved]
  - Hypothermia [Recovered/Resolved]
  - White blood cell count decreased [Recovering/Resolving]
  - Platelet count decreased [Recovered/Resolved]
  - Body temperature fluctuation [Recovered/Resolved]
  - Headache [Recovered/Resolved]
  - Arthralgia [Unknown]

NARRATIVE: CASE EVENT DATE: 20190613
